FAERS Safety Report 9009486 (Version 1)
Quarter: 2013Q1

REPORT INFORMATION
  Report Type: Report from Study
  Country: DE (occurrence: DE)
  Receive Date: 20130111
  Receipt Date: 20130111
  Transmission Date: 20140127
  Serious: Yes (Hospitalization)
  Sender: FDA-Public Use
  Company Number: DE-BAXTER-2012BAX025149

PATIENT
  Age: 51 Year
  Sex: Female
  Weight: 72 kg

DRUGS (12)
  1. ENDOXAN 1G [Suspect]
     Indication: BREAST CANCER
     Route: 042
     Dates: start: 20080923
  2. ENDOXAN 1G [Suspect]
     Route: 042
     Dates: start: 20081125
  3. BEVACIZUMAB [Suspect]
     Indication: BREAST CANCER
     Route: 042
     Dates: start: 20080923
  4. BEVACIZUMAB [Suspect]
     Route: 042
     Dates: start: 20081125
  5. FLUOROURACIL [Suspect]
     Indication: BREAST CANCER
     Route: 042
     Dates: start: 20080923
  6. FLUOROURACIL [Suspect]
     Route: 042
     Dates: start: 20081125
  7. EPIRUBICIN [Suspect]
     Indication: BREAST CANCER
     Route: 042
     Dates: start: 20080923
  8. EPIRUBICIN [Suspect]
     Route: 042
     Dates: start: 20081125
  9. PANTOPRAZOLE [Concomitant]
     Indication: PRODUCT USED FOR UNKNOWN INDICATION
     Route: 065
     Dates: start: 20050115
  10. ANAFRANIL [Concomitant]
     Indication: PRODUCT USED FOR UNKNOWN INDICATION
     Route: 065
     Dates: start: 20050115
  11. BELOC-ZOK [Concomitant]
     Indication: PRODUCT USED FOR UNKNOWN INDICATION
     Route: 065
     Dates: start: 20040715
  12. L-THYROXIN [Concomitant]
     Indication: PRODUCT USED FOR UNKNOWN INDICATION
     Route: 065
     Dates: start: 20030715

REACTIONS (2)
  - Pancytopenia [Recovered/Resolved]
  - Convulsion [Recovered/Resolved]
